FAERS Safety Report 6696404-7 (Version None)
Quarter: 2010Q2

REPORT INFORMATION
  Report Type: 
  Country: None (occurrence: None)
  Receive Date: 20100426
  Receipt Date: 20100416
  Transmission Date: 20101027
  Serious: Yes (Other)
  Sender: FDA-Public Use
  Company Number: CO-ROCHE-697682

PATIENT
  Sex: Female

DRUGS (1)
  1. HERCEPTIN [Suspect]
     Indication: BREAST CANCER
     Dosage: LAST INFUSION ON 17 MARCH 2010
     Route: 042
     Dates: start: 20091222

REACTIONS (2)
  - CARDIAC DISORDER [None]
  - CHEST PAIN [None]
